FAERS Safety Report 19299759 (Version 2)
Quarter: 2021Q2

REPORT INFORMATION
  Report Type: Spontaneous
  Country: US (occurrence: US)
  Receive Date: 20210524
  Receipt Date: 20210609
  Transmission Date: 20210717
  Serious: No
  Sender: FDA-Public Use
  Company Number: US-GILEAD-2021-0530803

PATIENT
  Sex: Male

DRUGS (5)
  1. BRILINTA [Concomitant]
     Active Substance: TICAGRELOR
  2. ASPIRIN EC [Concomitant]
     Active Substance: ASPIRIN
  3. SOFOSBUVIR;VELPATASVIR [Suspect]
     Active Substance: SOFOSBUVIR\VELPATASVIR
     Indication: CHRONIC HEPATITIS C
     Dosage: TAKE 1 TABLET BY MOUTH ONCE DAILY. GENERIC FOR: EPCLUSA
     Route: 065
     Dates: start: 202105
  4. ATORVASTATIN CALCIUM. [Concomitant]
     Active Substance: ATORVASTATIN CALCIUM
  5. TYLENOL [Concomitant]
     Active Substance: ACETAMINOPHEN

REACTIONS (1)
  - Intentional dose omission [Unknown]
